FAERS Safety Report 5970599 (Version 21)
Quarter: 2013Q4

REPORT INFORMATION
  Report Type: Spontaneous
  Country: US (occurrence: US)
  Receive Date: 20060127
  Receipt Date: 20131204
  Transmission Date: 20140711
  Serious: Yes (Hospitalization, Other)
  Sender: FDA-Public Use
  Company Number: PHEH2006US01255

PATIENT
  Age: 71 Year
  Sex: Male
  Weight: 80.73 kg

DRUGS (40)
  1. AREDIA [Suspect]
     Indication: METASTASES TO BONE
     Dates: start: 200208
  2. ZOMETA [Suspect]
     Dosage: 4 MG, QW3
     Dates: start: 200410
  3. PROCRIT [Concomitant]
     Dosage: 40000 U, QW
  4. IRON SUPPLEMENTS [Concomitant]
     Dosage: 325 MG, QD
  5. NEURONTIN [Concomitant]
     Dosage: 600 MG, BID
  6. FOLIC ACID [Concomitant]
     Dosage: 1 MG, QD
  7. BUMEX [Concomitant]
     Dosage: 1 MG,
  8. NAPROXEN [Concomitant]
     Dosage: 500 MG, BID
  9. K-DUR [Concomitant]
     Dosage: 20 MEQ, BID
  10. OXYCONTIN [Concomitant]
  11. GABAPENTIN [Concomitant]
  12. PROTONIX ^PHARMACIA^ [Concomitant]
  13. MULTIVITAMINS [Concomitant]
  14. SENNA [Concomitant]
  15. SENOKOT-S [Concomitant]
  16. TEMAZEPAM [Concomitant]
  17. DEXAMETHASONE [Concomitant]
  18. AZITHROMYCIN [Concomitant]
  19. MYCELEX [Concomitant]
  20. KEFLEX                                  /UNK/ [Concomitant]
  21. CHLORHEXIDINE [Concomitant]
  22. CEFPROZIL [Concomitant]
  23. PROMETHAZINE [Concomitant]
  24. PERI-COLACE [Concomitant]
  25. PROCHLORPERAZINE [Concomitant]
  26. COMBIVENT                               /GFR/ [Concomitant]
  27. DICLOXACILLIN [Concomitant]
  28. COUMADIN ^BOOTS^ [Concomitant]
  29. ZOFRAN [Concomitant]
  30. COLACE [Concomitant]
  31. ARANESP [Concomitant]
  32. VELCADE [Concomitant]
  33. PREVACID [Concomitant]
     Dosage: 30 MG, QD
     Route: 048
  34. GLUCOSAMINE SULFATE W/CHONDROITIN [Concomitant]
     Dosage: 2 DF, TID
     Route: 048
  35. CENTRUM SILVER [Concomitant]
     Dosage: 1 DF,
     Route: 048
  36. VITAMIN C [Concomitant]
  37. TYLENOL [Concomitant]
     Route: 048
  38. VANCOMYCIN [Concomitant]
  39. AUGMENTIN [Concomitant]
     Dosage: 125 MG, ONCE/SINGLE
  40. PERIOGARD [Concomitant]

REACTIONS (108)
  - Pathological fracture [Unknown]
  - Leukopenia [Unknown]
  - Pneumonia [Unknown]
  - Fall [Unknown]
  - Osteonecrosis of jaw [Recovering/Resolving]
  - Pain in jaw [Recovering/Resolving]
  - Toothache [Recovering/Resolving]
  - Bone erosion [Recovering/Resolving]
  - Sinusitis [Recovering/Resolving]
  - Loose tooth [Unknown]
  - Fistula [Recovering/Resolving]
  - Actinomycosis [Unknown]
  - Wound dehiscence [Not Recovered/Not Resolved]
  - Bone fragmentation [Unknown]
  - Inflammation [Recovering/Resolving]
  - Swelling [Unknown]
  - Bone disorder [Recovering/Resolving]
  - Gingival disorder [Recovering/Resolving]
  - Impaired healing [Unknown]
  - Exostosis [Unknown]
  - Oral disorder [Unknown]
  - Mucosal haemorrhage [Unknown]
  - Plasma cell myeloma [Unknown]
  - Osteolysis [Unknown]
  - Paraproteinaemia [Unknown]
  - Thrombocytopenia [Unknown]
  - Abscess jaw [Unknown]
  - Hypoaesthesia [Unknown]
  - Peripheral vascular disorder [Unknown]
  - Pulse abnormal [Unknown]
  - Feeling cold [Unknown]
  - Hair growth abnormal [Unknown]
  - Onychomycosis [Unknown]
  - Nail discolouration [Unknown]
  - Nail dystrophy [Unknown]
  - Nail hypertrophy [Unknown]
  - Onychalgia [Unknown]
  - Prothrombin time prolonged [Unknown]
  - Osteoarthritis [Unknown]
  - Confusional state [Unknown]
  - Angina pectoris [Unknown]
  - Skin ulcer [Unknown]
  - Bone fistula [Unknown]
  - Cellulitis [Unknown]
  - Sepsis [Unknown]
  - Osteomyelitis [Unknown]
  - Mastication disorder [Unknown]
  - Poor peripheral circulation [Unknown]
  - Gait disturbance [Unknown]
  - Flushing [Unknown]
  - Nasal congestion [Unknown]
  - Pyrexia [Unknown]
  - Dyspnoea [Unknown]
  - Dysphonia [Unknown]
  - Constipation [Unknown]
  - Mental status changes [Unknown]
  - Disorientation [Unknown]
  - Dyspnoea exertional [Unknown]
  - Blister [Unknown]
  - Obesity [Unknown]
  - Nausea [Unknown]
  - Cough [Unknown]
  - Oedema peripheral [Unknown]
  - Asthenia [Unknown]
  - Headache [Unknown]
  - Visual acuity reduced [Unknown]
  - Hypoacusis [Unknown]
  - Bundle branch block right [Unknown]
  - Ingrowing nail [Unknown]
  - Dental caries [Unknown]
  - Limb injury [Unknown]
  - Hip fracture [Unknown]
  - Dry mouth [Unknown]
  - Candida infection [Unknown]
  - Laryngitis [Unknown]
  - Hypertension [Recovering/Resolving]
  - Arteriosclerosis [Unknown]
  - Bone lesion [Unknown]
  - Bone loss [Unknown]
  - Rib fracture [Unknown]
  - Lymphoedema [Unknown]
  - Osteoporosis [Unknown]
  - Iron overload [Unknown]
  - Haemorrhoids [Unknown]
  - Diarrhoea [Unknown]
  - Insomnia [Unknown]
  - Neuralgia [Unknown]
  - Pain [Unknown]
  - Muscular weakness [Unknown]
  - Memory impairment [Unknown]
  - Contusion [Unknown]
  - Urinary incontinence [Unknown]
  - Cyanosis [Unknown]
  - Depression [Unknown]
  - Vision blurred [Unknown]
  - Neuropathy peripheral [Unknown]
  - Muscle spasms [Unknown]
  - Abdominal pain [Unknown]
  - Jaw disorder [Unknown]
  - Discomfort [Unknown]
  - Hyperlipidaemia [Unknown]
  - Arthralgia [Unknown]
  - Bone pain [Unknown]
  - Pain in extremity [Unknown]
  - Trigeminal neuralgia [Unknown]
  - Gingivitis [Unknown]
  - Dermatitis [Unknown]
  - Rash [Unknown]
